FAERS Safety Report 6940704-X (Version None)
Quarter: 2010Q3

REPORT INFORMATION
  Report Type: 
  Country: None (occurrence: None)
  Receive Date: 20100825
  Receipt Date: 20100817
  Transmission Date: 20110219
  Serious: Yes (Other)
  Sender: FDA-Public Use
  Company Number: EG-ROCHE-721635

PATIENT
  Sex: Male

DRUGS (1)
  1. HERCEPTIN [Suspect]
     Indication: BREAST CANCER
     Dosage: FORM: INFUSION,
     Route: 065

REACTIONS (1)
  - DISEASE PROGRESSION [None]
